FAERS Safety Report 17993273 (Version 1)
Quarter: 2020Q3

REPORT INFORMATION
  Report Type: Spontaneous
  Country: US (occurrence: US)
  Receive Date: 20200706
  Receipt Date: 20200706
  Transmission Date: 20201103
  Serious: Yes (Death)
  Sender: FDA-Public Use
  Company Number: None

PATIENT
  Sex: Female

DRUGS (28)
  1. ASPIRIN. [Concomitant]
     Active Substance: ASPIRIN
  2. VITAMIN D3 [Concomitant]
     Active Substance: CHOLECALCIFEROL
  3. CALCIUM [Concomitant]
     Active Substance: CALCIUM
  4. OPSUMIT [Concomitant]
     Active Substance: MACITENTAN
  5. CYCLOPHOSPH [Concomitant]
  6. IPRATROPIUM [Concomitant]
     Active Substance: IPRATROPIUM
  7. TYVASO REFIL SOL [Concomitant]
  8. ELIQUIS [Concomitant]
     Active Substance: APIXABAN
  9. IPRATROPIUM/SOL ALBUTER [Concomitant]
  10. KLOR?CON M10 [Concomitant]
     Active Substance: POTASSIUM CHLORIDE
  11. KLOR?CON M15 [Concomitant]
  12. MUPIROCIN. [Concomitant]
     Active Substance: MUPIROCIN
  13. POT CL MICRO [Concomitant]
  14. ALENDRONATE [Concomitant]
     Active Substance: ALENDRONATE SODIUM
  15. GABAPENTIN. [Concomitant]
     Active Substance: GABAPENTIN
  16. NITRO?BID [Concomitant]
     Active Substance: NITROGLYCERIN
  17. NYSTATIN. [Concomitant]
     Active Substance: NYSTATIN
  18. PENTOXIFYLLI [Concomitant]
  19. PREDNISONE. [Concomitant]
     Active Substance: PREDNISONE
  20. SOLU?MEDROL [Concomitant]
     Active Substance: METHYLPREDNISOLONE SODIUM SUCCINATE
  21. ESBRIET [Suspect]
     Active Substance: PIRFENIDONE
     Indication: PULMONARY ARTERIAL HYPERTENSION
     Route: 048
  22. CARDIZEM CD [Concomitant]
     Active Substance: DILTIAZEM HYDROCHLORIDE
  23. DOXYCYCL HYC [Concomitant]
  24. PANTOPRAZOLE [Concomitant]
     Active Substance: PANTOPRAZOLE
  25. FUROSEMIDE. [Concomitant]
     Active Substance: FUROSEMIDE
  26. AMIODARONE [Concomitant]
     Active Substance: AMIODARONE
  27. FLOVENT HFA [Concomitant]
     Active Substance: FLUTICASONE PROPIONATE
  28. VALACYCLOVIR [Concomitant]
     Active Substance: VALACYCLOVIR HYDROCHLORIDE

REACTIONS (1)
  - Death [None]
